FAERS Safety Report 8767530 (Version 2)
Quarter: 2012Q4

REPORT INFORMATION
  Report Type: 
  Country: US (occurrence: US)
  Receive Date: 20120904
  Receipt Date: 20121113
  Transmission Date: 20130627
  Serious: Yes (Hospitalization, Other)
  Sender: FDA-Public Use
  Company Number: US-ACTELION-A-CH2012-70765

PATIENT
  Age: 37 Year
  Sex: Female
  Weight: 87.89 kg

DRUGS (20)
  1. BOSENTAN [Suspect]
     Indication: PULMONARY ARTERIAL HYPERTENSION
     Dosage: 125 mg, bid
     Route: 048
     Dates: start: 20120619
  2. SILDENAFIL [Concomitant]
     Dosage: 100 mg, tid
     Route: 048
     Dates: start: 2008
  3. ALBUTEROL W/IPRATROPIUM [Concomitant]
     Dosage: UNK
     Dates: start: 20120510
  4. VITAMIN C [Concomitant]
     Dosage: UNK
     Dates: start: 2010
  5. DIGOXIN [Concomitant]
     Dosage: UNK
     Dates: start: 2009
  6. VITAMIN D [Concomitant]
     Dosage: UNK
     Dates: start: 2010
  7. ETHACRYNIC ACID [Concomitant]
     Dosage: UNK
     Dates: start: 2009
  8. GABAPENTIN [Concomitant]
     Dosage: UNK
     Dates: start: 2009
  9. LEVETIRACETAM [Concomitant]
     Dosage: UNK
     Dates: start: 201009
  10. LISINOPRIL [Concomitant]
     Dosage: UNK
     Dates: start: 20090724
  11. LORATADINE [Concomitant]
     Dosage: UNK
     Dates: start: 20110713
  12. LORAZEPAM [Concomitant]
     Dosage: UNK
     Dates: start: 201011
  13. OXYCODONE [Concomitant]
     Dosage: UNK
     Dates: start: 2009
  14. PANTOPRAZOLE [Concomitant]
     Dosage: UNK
     Dates: start: 20120312
  15. PREDNISONE [Concomitant]
     Dosage: UNK
     Dates: start: 2007
  16. SERTRALINE [Concomitant]
     Dosage: UNK
     Dates: start: 201012
  17. SPIRONOLACTONE [Concomitant]
     Dosage: UNK
     Dates: start: 2007
  18. WARFARIN [Concomitant]
     Dosage: UNK
     Dates: start: 2009
  19. CALCIUM CARBONATE [Concomitant]
     Dosage: UNK
     Dates: start: 20120720
  20. FLUTICASONE [Concomitant]
     Dosage: UNK
     Dates: start: 20120510

REACTIONS (6)
  - Nausea [Recovered/Resolved]
  - Vomiting [Recovered/Resolved]
  - Abdominal pain lower [Not Recovered/Not Resolved]
  - Pelvic pain [Not Recovered/Not Resolved]
  - Depression [Recovered/Resolved]
  - Suicidal ideation [Recovered/Resolved]
